FAERS Safety Report 12383471 (Version 1)
Quarter: 2016Q2

REPORT INFORMATION
  Report Type: Report from Study
  Country: AU (occurrence: AU)
  Receive Date: 20160518
  Receipt Date: 20160518
  Transmission Date: 20160815
  Serious: Yes (Other)
  Sender: FDA-Public Use
  Company Number: AU-GILEAD-2016-0213276

PATIENT
  Age: 59 Year
  Sex: Male

DRUGS (7)
  1. FOSAMPRENAVIR [Concomitant]
     Active Substance: FOSAMPRENAVIR
  2. 3TC [Concomitant]
     Active Substance: LAMIVUDINE
  3. LOPINAVIR [Concomitant]
     Active Substance: LOPINAVIR
  4. RALTEGRAVIR. [Concomitant]
     Active Substance: RALTEGRAVIR
  5. TENOFOVIR DISOPROXIL FUMARATE. [Suspect]
     Active Substance: TENOFOVIR DISOPROXIL FUMARATE
     Indication: HIV INFECTION
     Dosage: UNK
     Route: 065
     Dates: start: 200602
  6. ATAZANAVIR [Concomitant]
     Active Substance: ATAZANAVIR
  7. EMTRICITABINE [Suspect]
     Active Substance: EMTRICITABINE
     Indication: HIV INFECTION
     Dosage: UNK
     Route: 065
     Dates: start: 200602, end: 200910

REACTIONS (1)
  - Chronic kidney disease [Unknown]
